FAERS Safety Report 6902740-9 (Version None)
Quarter: 2010Q3

REPORT INFORMATION
  Report Type: 
  Country: None (occurrence: None)
  Receive Date: 20100803
  Receipt Date: 20080703
  Transmission Date: 20110219
  Serious: No
  Sender: FDA-Public Use
  Company Number: US-PFIZER INC-2008057927

PATIENT
  Sex: Female

DRUGS (8)
  1. LYRICA [Suspect]
     Indication: FIBROMYALGIA
     Dates: start: 20080628, end: 20080701
  2. METRONIDAZOLE [Concomitant]
  3. CLONAZEPAM [Concomitant]
  4. SIMVASTATIN [Concomitant]
  5. LISINOPRIL [Concomitant]
  6. PROPRANOLOL [Concomitant]
  7. CYMBALTA [Concomitant]
  8. PERCOCET [Concomitant]

REACTIONS (1)
  - TREMOR [None]
